FAERS Safety Report 9160271 (Version 2)
Quarter: 2013Q1

REPORT INFORMATION
  Report Type: Report from Study
  Country: CN (occurrence: CN)
  Receive Date: 20130313
  Receipt Date: 20130314
  Transmission Date: 20140127
  Serious: Yes (Death)
  Sender: FDA-Public Use
  Company Number: CN-ROCHE-1201422

PATIENT
  Sex: Male

DRUGS (2)
  1. CELLCEPT [Suspect]
     Indication: RENAL TRANSPLANT
     Route: 048
     Dates: start: 20030801
  2. CICLOSPORIN A [Concomitant]
     Indication: RENAL TRANSPLANT
     Route: 048
     Dates: start: 20030801

REACTIONS (1)
  - Death [Fatal]
